FAERS Safety Report 23161202 (Version 1)
Quarter: 2023Q4

REPORT INFORMATION
  Report Type: Spontaneous
  Country: CN (occurrence: CN)
  Receive Date: 20231108
  Receipt Date: 20231108
  Transmission Date: 20240109
  Serious: Yes (Hospitalization, Disabling)
  Sender: FDA-Public Use
  Company Number: CN-BAYER-2023A156100

PATIENT
  Age: 58 Year
  Sex: Female
  Weight: 71 kg

DRUGS (3)
  1. STIVARGA [Suspect]
     Active Substance: REGORAFENIB
     Indication: Gallbladder cancer
     Dosage: 80 MG, QD
     Route: 048
     Dates: start: 20231004, end: 20231010
  2. STIVARGA [Suspect]
     Active Substance: REGORAFENIB
     Indication: Gallbladder cancer
     Dosage: 120 MG, QD
     Route: 048
     Dates: start: 20231011, end: 20231014
  3. STIVARGA [Suspect]
     Active Substance: REGORAFENIB
     Indication: Gallbladder cancer
     Dosage: 80 UNK
     Route: 048
     Dates: start: 20231024

REACTIONS (9)
  - Rash erythematous [Recovered/Resolved]
  - Periorbital oedema [Recovering/Resolving]
  - Proteinuria [Recovering/Resolving]
  - Pyrexia [Recovered/Resolved]
  - Pain of skin [Recovering/Resolving]
  - Face oedema [Recovering/Resolving]
  - Eyelid oedema [Recovering/Resolving]
  - Oedema peripheral [Recovering/Resolving]
  - Off label use [None]

NARRATIVE: CASE EVENT DATE: 20231004
